FAERS Safety Report 20689968 (Version 1)
Quarter: 2022Q2

REPORT INFORMATION
  Report Type: Spontaneous
  Country: BR (occurrence: BR)
  Receive Date: 20220408
  Receipt Date: 20220408
  Transmission Date: 20220721
  Serious: Yes (Other)
  Sender: FDA-Public Use
  Company Number: BR-PFIZER INC-202200520498

PATIENT
  Age: 71 Year
  Sex: Male

DRUGS (1)
  1. XALATAN [Suspect]
     Active Substance: LATANOPROST
     Indication: Glaucoma
     Dosage: UNK

REACTIONS (4)
  - Drug ineffective [Unknown]
  - Blindness [Unknown]
  - Neck pain [Unknown]
  - Eye pain [Unknown]
